FAERS Safety Report 8848264 (Version 3)
Quarter: 2013Q2

REPORT INFORMATION
  Report Type: Spontaneous
  Country: US (occurrence: US)
  Receive Date: 20121018
  Receipt Date: 20130524
  Transmission Date: 20140414
  Serious: Yes (Hospitalization, Other)
  Sender: FDA-Public Use
  Company Number: US-ROCHE-1146186

PATIENT
  Sex: Female
  Weight: 105.33 kg

DRUGS (1)
  1. ACCUTANE [Suspect]
     Indication: SKIN DISORDER
     Route: 065
     Dates: start: 2002, end: 2003

REACTIONS (4)
  - Inflammatory bowel disease [Unknown]
  - Injury [Unknown]
  - Colitis ulcerative [Unknown]
  - Irritable bowel syndrome [Unknown]
